FAERS Safety Report 7496200-7 (Version None)
Quarter: 2011Q2

REPORT INFORMATION
  Report Type: 
  Country: None (occurrence: None)
  Receive Date: 20110523
  Receipt Date: 20110513
  Transmission Date: 20111010
  Serious: Yes (Other)
  Sender: FDA-Public Use
  Company Number: PHFR2010GB06175

PATIENT
  Sex: Female

DRUGS (2)
  1. CLOZARIL [Suspect]
     Indication: SCHIZOPHRENIA
     Dosage: 175 MG, QD
     Route: 048
     Dates: start: 19970626
  2. CYCLOSPORINE [Suspect]
     Indication: HIDRADENITIS
     Dosage: 3 MG/KG, UNK
     Route: 048

REACTIONS (3)
  - HIDRADENITIS [None]
  - PANCREATIC CYST [None]
  - PANCREATITIS [None]
